FAERS Safety Report 5479553-0 (Version None)
Quarter: 2007Q3

REPORT INFORMATION
  Report Type: 
  Country: None (occurrence: None)
  Receive Date: 20070913
  Receipt Date: 20070110
  Transmission Date: 20080115
  Serious: Yes (Hospitalization)
  Sender: FDA-Public Use
  Company Number: PHEH2007US00908

PATIENT
  Sex: Male

DRUGS (2)
  1. DIOVAN [Suspect]
     Dosage: 80 MG, QD 160 MG, QD
  2. DIOVAN HCT [Suspect]
     Dosage: 160MG VAL/25MG HCT, QD;

REACTIONS (1)
  - RENAL FAILURE ACUTE [None]
